FAERS Safety Report 8953910 (Version 2)
Quarter: 2013Q1

REPORT INFORMATION
  Report Type: Spontaneous
  Country: US (occurrence: US)
  Receive Date: 20121206
  Receipt Date: 20130131
  Transmission Date: 20140127
  Serious: Yes (Hospitalization)
  Sender: FDA-Public Use
  Company Number: US-BAXTER-2012BAX025744

PATIENT
  Age: 59 Year
  Sex: Male

DRUGS (1)
  1. DIANEAL LOW CALCIUM (ULTRABAG) [Suspect]
     Indication: PERITONEAL DIALYSIS
     Route: 033

REACTIONS (3)
  - Pharyngitis [Recovering/Resolving]
  - Haemoglobin decreased [Recovering/Resolving]
  - Pleural effusion [Recovering/Resolving]
